FAERS Safety Report 15449946 (Version 1)
Quarter: 2018Q4

REPORT INFORMATION
  Report Type: Spontaneous
  Country: JP (occurrence: JP)
  Receive Date: 20181001
  Receipt Date: 20181001
  Transmission Date: 20190204
  Serious: Yes (Other)
  Sender: FDA-Public Use
  Company Number: JP-TEVA-2018-JP-001590J

PATIENT
  Age: 85 Year
  Sex: Female

DRUGS (4)
  1. PREDNISOLONE TABLETS 5MG. [Suspect]
     Active Substance: PREDNISOLONE
     Dosage: 30 MILLIGRAM DAILY;
     Route: 048
     Dates: start: 201804
  2. ANALGESIC [Concomitant]
     Active Substance: UNSPECIFIED INGREDIENT
  3. PREDNISOLONE TABLETS 5MG. [Suspect]
     Active Substance: PREDNISOLONE
     Indication: MUSCULOSKELETAL STIFFNESS
     Dosage: 20 MILLIGRAM DAILY;
     Route: 048
     Dates: start: 201803, end: 201804
  4. PREDNISOLONE TABLETS 5MG. [Suspect]
     Active Substance: PREDNISOLONE
     Indication: ANAEMIA
     Dosage: 30 MILLIGRAM DAILY;
     Route: 048
     Dates: start: 201804, end: 201804

REACTIONS (4)
  - Oedema peripheral [Unknown]
  - Back pain [Unknown]
  - Face oedema [Unknown]
  - Muscular weakness [Unknown]

NARRATIVE: CASE EVENT DATE: 201804
